FAERS Safety Report 10395721 (Version 1)
Quarter: 2014Q1

REPORT INFORMATION
  Report Type: Spontaneous
  Country: US (occurrence: None)
  Receive Date: 20130107
  Receipt Date: 20130107
  Transmission Date: 20141002
  Serious: No
  Sender: FDA-Public Use
  Company Number: PHEH2012US012724

PATIENT
  Age: 26 Year
  Sex: Male

DRUGS (2)
  1. GILENYA (FTY) CAPSULE, 0.5MG [Suspect]
     Indication: MULTIPLE SCLEROSIS
     Route: 048
     Dates: start: 20120401
  2. MUSCLE RELAXANTS (NO INGREDIENTS/SUBSTANCES) [Concomitant]

REACTIONS (4)
  - Chest discomfort [None]
  - Depression [None]
  - Accidental overdose [None]
  - Apathy [None]
